FAERS Safety Report 10161165 (Version 1)
Quarter: 2014Q2

REPORT INFORMATION
  Report Type: Spontaneous
  Country: US (occurrence: US)
  Receive Date: 20140508
  Receipt Date: 20140508
  Transmission Date: 20141212
  Serious: No
  Sender: FDA-Public Use
  Company Number: US-009507513-2012SP023059

PATIENT
  Age: 5 Year
  Sex: Male
  Weight: 19.5 kg

DRUGS (2)
  1. CLARITIN ORAL SOLUTION [Suspect]
     Indication: SEASONAL ALLERGY
     Dosage: UNK UNK, ONCE
     Route: 048
     Dates: start: 20120322
  2. CLARITIN ORAL SOLUTION [Suspect]
     Dosage: UNK UNK, ONCE
     Route: 048
     Dates: start: 20120322

REACTIONS (1)
  - Overdose [Not Recovered/Not Resolved]
